FAERS Safety Report 8124880-1 (Version None)
Quarter: 2012Q1

REPORT INFORMATION
  Report Type: 
  Country: None (occurrence: None)
  Receive Date: 20120209
  Receipt Date: 20120131
  Transmission Date: 20120608
  Serious: No
  Sender: FDA-Public Use
  Company Number: CA-JNJFOC-20120203437

PATIENT
  Sex: Male
  Weight: 78 kg

DRUGS (16)
  1. TEGRETOL [Concomitant]
     Route: 048
  2. METHOTREXATE [Concomitant]
     Route: 058
  3. COSOPT [Concomitant]
     Route: 047
  4. BACTROBAN [Concomitant]
     Route: 061
  5. RAMIPRIL [Concomitant]
     Indication: BLOOD PRESSURE
     Route: 048
  6. NORTRIPTYLINE HCL [Concomitant]
     Route: 048
  7. METOPROLOL [Concomitant]
     Indication: BLOOD PRESSURE
     Route: 048
  8. LUMIGAN [Concomitant]
     Route: 047
  9. REMICADE [Suspect]
     Indication: PYODERMA GANGRENOSUM
     Route: 042
     Dates: start: 20100203
  10. TEMAZEPAM [Concomitant]
     Indication: INSOMNIA
     Route: 048
  11. ACETAMINOPHEN [Concomitant]
     Indication: PAIN
     Route: 048
  12. ARTHROTEC [Concomitant]
     Indication: PAIN
     Route: 048
  13. EURO FOLIC [Concomitant]
     Route: 048
  14. CYCLOBENZAPRIN HYDROCHLORIDE [Concomitant]
     Route: 048
  15. ANDRODERM [Concomitant]
     Route: 062
  16. TAMSULOSIN HCL [Concomitant]
     Route: 048

REACTIONS (1)
  - HERPES ZOSTER [None]
